FAERS Safety Report 22290762 (Version 2)
Quarter: 2023Q2

REPORT INFORMATION
  Report Type: Report from Study
  Country: US (occurrence: US)
  Receive Date: 20230505
  Receipt Date: 20230613
  Transmission Date: 20230722
  Serious: Yes (Other)
  Sender: FDA-Public Use
  Company Number: US-ABBVIE-4754098

PATIENT
  Age: 83 Year
  Sex: Female
  Weight: 100.69 kg

DRUGS (2)
  1. SKYRIZI [Suspect]
     Active Substance: RISANKIZUMAB-RZAA
     Indication: Psoriasis
     Route: 058
     Dates: start: 20201104
  2. INSULIN NOS [Concomitant]
     Active Substance: INSULIN NOS
     Indication: Type 2 diabetes mellitus
     Route: 065

REACTIONS (6)
  - Spinal operation [Unknown]
  - Body height decreased [Not Recovered/Not Resolved]
  - Sciatica [Recovered/Resolved]
  - Pain [Unknown]
  - Sciatica [Recovered/Resolved]
  - Knee operation [Unknown]

NARRATIVE: CASE EVENT DATE: 20230501
